FAERS Safety Report 4625746-1 (Version None)
Quarter: 2005Q1

REPORT INFORMATION
  Report Type: 
  Country: None (occurrence: None)
  Receive Date: 20050330
  Receipt Date: 20050310
  Transmission Date: 20050727
  Serious: Yes (Other)
  Sender: FDA-Public Use
  Company Number: GBS41216214

PATIENT
  Age: 63 Year
  Sex: Female

DRUGS (1)
  1. FORTEO [Suspect]
     Indication: OSTEOPOROSIS
     Dosage: 20 UG DAY
     Dates: start: 20040901

REACTIONS (10)
  - AREFLEXIA [None]
  - BACK PAIN [None]
  - DIFFICULTY IN WALKING [None]
  - HEADACHE [None]
  - HYPOAESTHESIA [None]
  - MOVEMENT DISORDER [None]
  - MUSCLE CONTRACTIONS INVOLUNTARY [None]
  - NERVE ROOT COMPRESSION [None]
  - SENSATION OF HEAVINESS [None]
  - VIBRATION TEST ABNORMAL [None]
